FAERS Safety Report 7067608-9 (Version None)
Quarter: 2010Q4

REPORT INFORMATION
  Report Type: 
  Country: None (occurrence: None)
  Receive Date: 20101028
  Receipt Date: 20101018
  Transmission Date: 20110411
  Serious: Yes (Hospitalization)
  Sender: FDA-Public Use
  Company Number: US-BRISTOL-MYERS SQUIBB COMPANY-15340946

PATIENT
  Age: 53 Year
  Sex: Female
  Weight: 77 kg

DRUGS (9)
  1. CYTOXAN [Suspect]
     Indication: BREAST CANCER
     Dosage: 1DF:1100 UNITS NOT SPECIFIED
     Route: 042
     Dates: start: 20100922, end: 20101015
  2. ADRIAMYCIN PFS [Suspect]
     Indication: BREAST CANCER
     Dosage: 1DF:110 UNITS NOT SPECIFIED
     Route: 042
     Dates: start: 20100922, end: 20101015
  3. ATENOLOL [Concomitant]
     Indication: HYPERTENSION
  4. VICODIN [Concomitant]
     Indication: PAIN
     Dosage: 1DF:1 TAB
  5. COMPAZINE [Concomitant]
     Indication: NAUSEA
  6. IMODIUM [Concomitant]
     Indication: DIARRHOEA
  7. OMEPRAZOLE [Concomitant]
     Indication: GASTROOESOPHAGEAL REFLUX DISEASE
  8. XANAX [Concomitant]
     Indication: ANXIETY
  9. IBUPROFEN [Concomitant]
     Indication: PAIN

REACTIONS (1)
  - DEHYDRATION [None]
